FAERS Safety Report 23248871 (Version 3)
Quarter: 2024Q1

REPORT INFORMATION
  Report Type: Spontaneous
  Country: US (occurrence: US)
  Receive Date: 20231201
  Receipt Date: 20240110
  Transmission Date: 20240410
  Serious: No
  Sender: FDA-Public Use
  Company Number: US-VIIV HEALTHCARE LIMITED-US2023157659

PATIENT
  Sex: Male
  Weight: 61.2 kg

DRUGS (1)
  1. CABENUVA [Suspect]
     Active Substance: CABOTEGRAVIR\RILPIVIRINE
     Indication: Product used for unknown indication
     Dosage: UNK UNK, Q2M (SINGLE-DOSE VIAL OF 600-MG/900-MG KIT, INJECTION, EVERY 2 MONTHS)
     Dates: end: 20231106

REACTIONS (1)
  - No adverse event [Unknown]
